FAERS Safety Report 13030557 (Version 1)
Quarter: 2016Q4

REPORT INFORMATION
  Report Type: Spontaneous
  Country: US (occurrence: US)
  Receive Date: 20161214
  Receipt Date: 20161214
  Transmission Date: 20170207
  Serious: Yes (Other)
  Sender: FDA-Public Use
  Company Number: None

PATIENT
  Age: 68 Year

DRUGS (1)
  1. HARVONI [Suspect]
     Active Substance: LEDIPASVIR\SOFOSBUVIR

REACTIONS (5)
  - Ocular icterus [None]
  - Therapy cessation [None]
  - Gastrointestinal disorder [None]
  - Blood bilirubin increased [None]
  - Pruritus generalised [None]

NARRATIVE: CASE EVENT DATE: 20161202
